FAERS Safety Report 23051356 (Version 1)
Quarter: 2023Q4

REPORT INFORMATION
  Report Type: Spontaneous
  Country: HU (occurrence: HU)
  Receive Date: 20231010
  Receipt Date: 20231010
  Transmission Date: 20240110
  Serious: Yes (Other)
  Sender: FDA-Public Use
  Company Number: None

PATIENT

DRUGS (2)
  1. PICOPREP [Suspect]
     Active Substance: ANHYDROUS CITRIC ACID\MAGNESIUM OXIDE\SODIUM PICOSULFATE
     Indication: Purging
     Dosage: TWO POUCH DURING THE DAY
     Route: 048
     Dates: start: 20230228
  2. ALPRAZOLAM [Concomitant]
     Active Substance: ALPRAZOLAM
     Indication: Insomnia
     Dosage: UNK
     Dates: start: 20130101, end: 20230919

REACTIONS (5)
  - Abnormal faeces [Not Recovered/Not Resolved]
  - Malnutrition [Not Recovered/Not Resolved]
  - Gastrointestinal injury [Not Recovered/Not Resolved]
  - Gastrointestinal pain [Not Recovered/Not Resolved]
  - Product use in unapproved indication [Not Recovered/Not Resolved]

NARRATIVE: CASE EVENT DATE: 20230228
